FAERS Safety Report 12447949 (Version 3)
Quarter: 2016Q2

REPORT INFORMATION
  Report Type: Spontaneous
  Country: GR (occurrence: GR)
  Receive Date: 20160608
  Receipt Date: 20160621
  Transmission Date: 20160815
  Serious: Yes (Other)
  Sender: FDA-Public Use
  Company Number: GR-PFIZER INC-2016287156

PATIENT
  Age: 60 Year
  Sex: Female

DRUGS (5)
  1. EFFEXOR XR [Suspect]
     Active Substance: VENLAFAXINE HYDROCHLORIDE
     Indication: BIPOLAR I DISORDER
     Dosage: 150 MG, UNK
     Dates: start: 2011
  2. DEPAKINE /00228501/ [Concomitant]
     Active Substance: VALPROIC ACID
     Dosage: UNK
  3. TENORMIN [Concomitant]
     Active Substance: ATENOLOL
  4. EFFEXOR XR [Suspect]
     Active Substance: VENLAFAXINE HYDROCHLORIDE
     Dosage: 150 MG, UNK
     Dates: start: 201603, end: 201605
  5. XANAX [Concomitant]
     Active Substance: ALPRAZOLAM
     Dosage: 0.5 UNK, UNK

REACTIONS (9)
  - Yellow skin [Unknown]
  - Pelvic pain [Not Recovered/Not Resolved]
  - Faecaloma [Unknown]
  - Renal pain [Not Recovered/Not Resolved]
  - Constipation [Not Recovered/Not Resolved]
  - Vomiting [Unknown]
  - Anal prolapse [Unknown]
  - Gastrointestinal pain [Not Recovered/Not Resolved]
  - Flushing [Unknown]

NARRATIVE: CASE EVENT DATE: 20130614
